FAERS Safety Report 18243385 (Version 1)
Quarter: 2020Q3

REPORT INFORMATION
  Report Type: Spontaneous
  Country: FR (occurrence: FR)
  Receive Date: 20200908
  Receipt Date: 20200908
  Transmission Date: 20201103
  Serious: Yes (Life-Threatening)
  Sender: FDA-Public Use
  Company Number: FR-GLAXOSMITHKLINE-FR2020166858

PATIENT
  Sex: Female
  Weight: 95 kg

DRUGS (6)
  1. SYMBICORT [Suspect]
     Active Substance: BUDESONIDE\FORMOTEROL FUMARATE DIHYDRATE
     Indication: ASTHMA
     Dosage: UNK, (200/6 ?G)
     Dates: start: 201910, end: 202005
  2. INORIAL [Concomitant]
     Active Substance: BILASTINE
     Indication: ANTIALLERGIC THERAPY
     Dosage: 20 MG, QD
     Dates: start: 2018
  3. INORIAL [Concomitant]
     Active Substance: BILASTINE
     Indication: DYSPNOEA
  4. INORIAL [Concomitant]
     Active Substance: BILASTINE
     Indication: ECZEMA
  5. RELVAR ELLIPTA [Suspect]
     Active Substance: FLUTICASONE FUROATE\VILANTEROL TRIFENATATE
     Indication: ASTHMA
     Dosage: 92 ?G, QD
     Dates: start: 20200528, end: 20200728
  6. VENTOLINE [Suspect]
     Active Substance: ALBUTEROL
     Indication: PRODUCT USED FOR UNKNOWN INDICATION
     Dosage: 100 UG
     Dates: start: 201910

REACTIONS (5)
  - Nausea [Unknown]
  - Chest pain [Recovered/Resolved]
  - Headache [Recovered/Resolved]
  - Therapy interrupted [Recovered/Resolved]
  - Dizziness [Recovered/Resolved]
